FAERS Safety Report 10519672 (Version 2)
Quarter: 2014Q4

REPORT INFORMATION
  Report Type: Spontaneous
  Country: US (occurrence: US)
  Receive Date: 20141015
  Receipt Date: 20141022
  Transmission Date: 20150528
  Serious: No
  Sender: FDA-Public Use
  Company Number: US-PFIZER INC-2014277449

PATIENT
  Sex: Female

DRUGS (2)
  1. PREMARIN [Suspect]
     Active Substance: ESTROGENS, CONJUGATED
     Indication: LIBIDO DISORDER
     Dosage: UNK, FIVE TIMES WEEKLY FOR THE FIRST TWO WEEKS
     Route: 061
     Dates: start: 201408
  2. PREMARIN [Suspect]
     Active Substance: ESTROGENS, CONJUGATED
     Dosage: UNK, THREE TIMES A WEEK
     Route: 061

REACTIONS (9)
  - Dyspnoea [Unknown]
  - Hypersensitivity [Unknown]
  - Vulvovaginal mycotic infection [Not Recovered/Not Resolved]
  - Abdominal pain [Unknown]
  - Vulvovaginal discomfort [Not Recovered/Not Resolved]
  - Off label use [Unknown]
  - Vulvovaginal burning sensation [Not Recovered/Not Resolved]
  - Headache [Unknown]
  - Alopecia [Unknown]
